FAERS Safety Report 5321722-4 (Version None)
Quarter: 2007Q2

REPORT INFORMATION
  Report Type: 
  Country: None (occurrence: None)
  Receive Date: 20070220
  Receipt Date: 20061009
  Transmission Date: 20071010
  Serious: No
  Sender: FDA-Public Use
  Company Number: TPA2006A01766

PATIENT
  Age: 64 Year
  Sex: Male
  Weight: 74.3899 kg

DRUGS (4)
  1. ROZEREM [Suspect]
     Indication: INSOMNIA
     Dosage: 8 MG, QHS, PER ORAL
     Route: 048
     Dates: start: 20060919, end: 20060920
  2. NIASPAN [Concomitant]
  3. LOVASTATIN [Concomitant]
  4. AMBIEN [Concomitant]

REACTIONS (4)
  - FEELING ABNORMAL [None]
  - HEADACHE [None]
  - MIDDLE INSOMNIA [None]
  - PARAESTHESIA [None]
